FAERS Safety Report 7660175-8 (Version None)
Quarter: 2011Q3

REPORT INFORMATION
  Report Type: 
  Country: None (occurrence: None)
  Receive Date: 20110805
  Receipt Date: 20110803
  Transmission Date: 20111222
  Serious: Yes (Death, Hospitalization, Other)
  Sender: FDA-Public Use
  Company Number: PHHY2011US47342

PATIENT
  Sex: Male

DRUGS (15)
  1. GLIPIZIDE [Concomitant]
     Indication: DIABETES MELLITUS
     Dosage: 5 MG, QD
  2. WARFARIN SODIUM [Concomitant]
     Indication: ATRIAL FIBRILLATION
     Dosage: 5 MG, QD
  3. LANTUS [Concomitant]
     Indication: DIABETES MELLITUS
  4. LYRICA [Concomitant]
     Indication: NEUROPATHY PERIPHERAL
     Dosage: 75 MG, BID
  5. BUMETANIDE [Concomitant]
     Indication: CARDIOMYOPATHY
     Dosage: 2 MG, BID
  6. ALLOPURINOL [Concomitant]
     Indication: GOUT
     Dosage: 100 MG, QD
     Route: 048
  7. ASPIRIN [Concomitant]
     Dosage: 81 MG, QD
     Route: 048
  8. CARVEDILOL [Concomitant]
     Indication: CARDIOMYOPATHY
     Dosage: 625 MG, BID
  9. KLOR-CON [Concomitant]
     Dosage: 10 MEQ, QD
  10. NIASPAN [Concomitant]
     Dosage: 500 MG, QD
  11. VICODIN [Concomitant]
     Dosage: 1 DF (5/500), UNK
  12. GLEEVEC [Suspect]
     Indication: CHRONIC MYELOID LEUKAEMIA
     Dosage: 400 MG, QD
     Route: 048
     Dates: start: 20110430
  13. DIGOXIN [Concomitant]
     Indication: CARDIOMYOPATHY
     Dosage: 0.125 MG, QD
  14. SIMVASTATIN [Concomitant]
     Indication: HYPERLIPIDAEMIA
     Dosage: 80 MG, QD2SDO
  15. HUMALOG [Concomitant]
     Indication: DIABETES MELLITUS

REACTIONS (15)
  - SWELLING [None]
  - BLOOD URIC ACID INCREASED [None]
  - GENERALISED OEDEMA [None]
  - BLOOD CREATININE INCREASED [None]
  - CARDIAC FAILURE CONGESTIVE [None]
  - SCROTAL OEDEMA [None]
  - DEATH [None]
  - DYSPNOEA [None]
  - WEIGHT INCREASED [None]
  - HAEMORRHAGE [None]
  - HAEMOGLOBIN DECREASED [None]
  - PLEURAL EFFUSION [None]
  - ASCITES [None]
  - WHITE BLOOD CELL COUNT DECREASED [None]
  - PLATELET COUNT DECREASED [None]
